FAERS Safety Report 23385275 (Version 1)
Quarter: 2024Q1

REPORT INFORMATION
  Report Type: Other
  Country: US (occurrence: None)
  Receive Date: 20240110
  Receipt Date: 20240110
  Transmission Date: 20240409
  Serious: Yes (Death)
  Sender: FDA-Public Use
  Company Number: US-ROCHE-3487421

PATIENT
  Age: 82 Year
  Sex: Male

DRUGS (11)
  1. TECENTRIQ [Suspect]
     Active Substance: ATEZOLIZUMAB
     Indication: Neoplasm malignant
     Route: 041
  2. TECENTRIQ [Suspect]
     Active Substance: ATEZOLIZUMAB
     Indication: Bronchial carcinoma
  3. APIXABAN [Concomitant]
     Active Substance: APIXABAN
  4. BISACODYL [Concomitant]
     Active Substance: BISACODYL
  5. DILTIAZEM [Concomitant]
     Active Substance: DILTIAZEM
  6. DOCUSATE SODIUM [Concomitant]
     Active Substance: DOCUSATE SODIUM
  7. FLUTICASONE [Concomitant]
     Active Substance: FLUTICASONE
  8. METOPROLOL [Concomitant]
     Active Substance: METOPROLOL
  9. POTASSIUM CHLORIDE [Concomitant]
     Active Substance: POTASSIUM CHLORIDE
  10. ROSUVASTATIN [Concomitant]
     Active Substance: ROSUVASTATIN
  11. UBIDECARENONE [Concomitant]
     Active Substance: UBIDECARENONE

REACTIONS (1)
  - Death [Fatal]
